FAERS Safety Report 9243335 (Version 4)
Quarter: 2013Q4

REPORT INFORMATION
  Report Type: Spontaneous
  Country: US (occurrence: US)
  Receive Date: 20130420
  Receipt Date: 20131226
  Transmission Date: 20140711
  Serious: Yes (Hospitalization)
  Sender: FDA-Public Use
  Company Number: US-B.I. PHARMACEUTICALS,INC./RIDGEFIELD-2013-BI-09715BP

PATIENT
  Sex: Male
  Weight: 113.4 kg

DRUGS (3)
  1. PRADAXA [Suspect]
     Indication: ATRIAL FIBRILLATION
     Dosage: 300 MG
     Route: 048
     Dates: start: 20110315, end: 20120214
  2. METOPROLOL TARTRATE [Concomitant]
     Dosage: 25 MG
     Route: 048
  3. SIMVASTATIN [Concomitant]
     Dosage: 80 MG
     Route: 048

REACTIONS (3)
  - Rectal haemorrhage [Recovered/Resolved]
  - Haemorrhagic anaemia [Unknown]
  - Lower gastrointestinal haemorrhage [Recovered/Resolved]
